FAERS Safety Report 16517402 (Version 1)
Quarter: 2019Q3

REPORT INFORMATION
  Report Type: Spontaneous
  Country: US (occurrence: US)
  Receive Date: 20190626
  Receipt Date: 20190626
  Transmission Date: 20191004
  Serious: No
  Sender: FDA-Public Use
  Company Number: None

PATIENT
  Sex: Male

DRUGS (2)
  1. OCUSOFT [CFSAN PRODUCT] [Suspect]
     Active Substance: UNSPECIFIED INGREDIENT
  2. THERATEARS STERILID [Suspect]
     Active Substance: TEA TREE OIL

REACTIONS (1)
  - Madarosis [None]
